FAERS Safety Report 7270259-4 (Version None)
Quarter: 2011Q1

REPORT INFORMATION
  Report Type: 
  Country: None (occurrence: None)
  Receive Date: 20110125
  Receipt Date: 20110125
  Transmission Date: 20110831
  Serious: Yes (Life-Threatening, Other)
  Sender: FDA-Public Use
  Company Number: None

PATIENT
  Age: 46 Year
  Sex: Female
  Weight: 56.6996 kg

DRUGS (3)
  1. NEURONTIN [Concomitant]
  2. TIZANIDINE HCL [Suspect]
     Indication: NECK PAIN
     Dosage: TIZANIDINE HCI 1-2 TIMES 3X DA MG PO
     Route: 048
     Dates: start: 20110118, end: 20110123
  3. GABAPENTIN [Suspect]
     Indication: BACK PAIN
     Dosage: GABAPENTIN 3 TIMES A DAY 300MG PO
     Route: 048
     Dates: start: 20110118, end: 20110123

REACTIONS (7)
  - FALL [None]
  - DYSPNOEA [None]
  - FATIGUE [None]
  - DRY MOUTH [None]
  - CLUMSINESS [None]
  - VISION BLURRED [None]
  - OEDEMA PERIPHERAL [None]
